FAERS Safety Report 13678393 (Version 1)
Quarter: 2017Q2

REPORT INFORMATION
  Report Type: Spontaneous
  Country: GB (occurrence: GB)
  Receive Date: 20170622
  Receipt Date: 20170622
  Transmission Date: 20170830
  Serious: Yes (Hospitalization, Disabling, Other)
  Sender: FDA-Public Use
  Company Number: GB-EISAI MEDICAL RESEARCH-EC-2017-028322

PATIENT
  Age: 47 Year
  Sex: Male
  Weight: 82 kg

DRUGS (3)
  1. LENVIMA [Suspect]
     Active Substance: LENVATINIB
     Route: 048
     Dates: start: 2017, end: 201706
  2. LEVOTHYROXINE. [Concomitant]
     Active Substance: LEVOTHYROXINE
     Indication: HYPOTHYROIDISM
     Dosage: 100 MCG
     Route: 048
     Dates: start: 20170214
  3. LENVIMA [Suspect]
     Active Substance: LENVATINIB
     Indication: NEOPLASM MALIGNANT
     Route: 048
     Dates: start: 20170130, end: 2017

REACTIONS (3)
  - Tracheo-oesophageal fistula [Not Recovered/Not Resolved]
  - Mucosal inflammation [Unknown]
  - Tracheal fistula [Not Recovered/Not Resolved]

NARRATIVE: CASE EVENT DATE: 2017
